FAERS Safety Report 12346702 (Version 4)
Quarter: 2016Q4

REPORT INFORMATION
  Report Type: Report from Study
  Country: TR (occurrence: TR)
  Receive Date: 20160509
  Receipt Date: 20161230
  Transmission Date: 20170207
  Serious: Yes (Hospitalization)
  Sender: FDA-Public Use
  Company Number: TR-ROCHE-1608440

PATIENT
  Age: 57 Year
  Sex: Male
  Weight: 57 kg

DRUGS (9)
  1. URIKOLIZ [Concomitant]
     Active Substance: ALLOPURINOL
     Indication: NAUSEA
     Dosage: 1 TABLET
     Route: 048
     Dates: start: 20161101
  2. NORMAL SALINE [Concomitant]
     Active Substance: SODIUM CHLORIDE
     Indication: NAUSEA
     Dosage: 1000 PRN
     Route: 042
     Dates: start: 20161101, end: 20161102
  3. BLINDED PERTUZUMAB [Suspect]
     Active Substance: PERTUZUMAB
     Indication: HER-2 POSITIVE GASTRIC CANCER
     Dosage: MOST RECENT DOSE PRIOR TO EVENT ONSET: 18/JUN/2015
     Route: 042
     Dates: start: 20150311
  4. TRASTUZUMAB [Suspect]
     Active Substance: TRASTUZUMAB
     Indication: HER-2 POSITIVE GASTRIC CANCER
     Dosage: LOADING DOSE (INITIAL DOSE OF 8 MG/KG)
     Route: 042
     Dates: start: 20150311, end: 20150311
  5. METPAMID [Concomitant]
     Active Substance: METOCLOPRAMIDE
     Dosage: PRN AS NEEDED
     Route: 048
     Dates: start: 20161101
  6. TRASTUZUMAB [Suspect]
     Active Substance: TRASTUZUMAB
     Dosage: MAINTAINANCE DOSE OF 6 MG/KG?ON 18/JUN/2015, MOST RECENT DOSE WAS TAKEN PRIOR TO THE EVENT.
     Route: 042
     Dates: start: 20150401
  7. CAPECITABINE. [Suspect]
     Active Substance: CAPECITABINE
     Indication: HER-2 POSITIVE GASTRIC CANCER
     Dosage: ON 18/JUN/2015, MOST RECENT DOSE WAS TAKEN PRIOR TO THE EVENT.
     Route: 048
     Dates: start: 20150311
  8. CISPLATIN. [Suspect]
     Active Substance: CISPLATIN
     Indication: HER-2 POSITIVE GASTRIC CANCER
     Dosage: MOST RECENT DOSE PRIOR TO EVENT ONSET: 18/JUN/2015
     Route: 042
     Dates: start: 20150311
  9. METPAMID [Concomitant]
     Active Substance: METOCLOPRAMIDE
     Indication: NAUSEA
     Dosage: PRN AS NEEDED
     Route: 042
     Dates: start: 20161101, end: 20161101

REACTIONS (1)
  - Blood creatinine increased [Recovering/Resolving]

NARRATIVE: CASE EVENT DATE: 20150714
